FAERS Safety Report 7512999-5 (Version None)
Quarter: 2011Q2

REPORT INFORMATION
  Report Type: 
  Country: None (occurrence: None)
  Receive Date: 20110531
  Receipt Date: 20100817
  Transmission Date: 20111010
  Serious: Yes (Other)
  Sender: FDA-Public Use
  Company Number: US-NOVEN-SPV1-2010-01432

PATIENT

DRUGS (6)
  1. DAYTRANA [Suspect]
     Dosage: 15 MG, 1X/DAY:QD
     Route: 062
     Dates: start: 20100101, end: 20100701
  2. PULMICORT [Concomitant]
     Dosage: UNK, 2X/DAY:BID
     Route: 055
  3. SINGULAIR [Concomitant]
     Dosage: 5 MG, 1X/DAY:QD
     Route: 048
  4. ALBUTEROL [Concomitant]
     Route: 055
  5. CLARITIN                           /00413701/ [Concomitant]
     Dosage: 2 TSP, 1X/DAY:QD
  6. FLONASE [Concomitant]
     Dosage: UNK, UNK
     Route: 055

REACTIONS (2)
  - PRODUCT QUALITY ISSUE [None]
  - CONVULSION [None]
